FAERS Safety Report 7488810-8 (Version None)
Quarter: 2011Q2

REPORT INFORMATION
  Report Type: 
  Country: None (occurrence: None)
  Receive Date: 20110518
  Receipt Date: 20110511
  Transmission Date: 20111010
  Serious: Yes (Hospitalization)
  Sender: FDA-Public Use
  Company Number: US-GENZYME-CAMP-1000248

PATIENT
  Sex: Male

DRUGS (18)
  1. SOLU-MEDROL [Concomitant]
     Indication: MULTIPLE SCLEROSIS RELAPSE
     Dosage: 1000 MG, EACH MONTH
     Route: 042
     Dates: start: 20070101, end: 20080101
  2. VITAMIN D [Concomitant]
     Indication: ROUTINE HEALTH MAINTENANCE
  3. WELLBUTRIN [Concomitant]
     Indication: PRODUCT USED FOR UNKNOWN INDICATION
  4. COPAXONE [Concomitant]
     Indication: MULTIPLE SCLEROSIS
     Dosage: 20 MG, QD
     Route: 058
     Dates: start: 20080401, end: 20081230
  5. ALPRAZOLAM [Concomitant]
     Indication: ANXIETY
     Dosage: 0.5 MG, PRN
     Route: 048
     Dates: start: 20070801
  6. AVONEX [Concomitant]
     Indication: MULTIPLE SCLEROSIS
  7. SOLU-MEDROL [Concomitant]
     Dosage: 1000 MG, QD
     Route: 042
     Dates: start: 20090329, end: 20090402
  8. MOTRIN [Concomitant]
     Indication: PRODUCT USED FOR UNKNOWN INDICATION
  9. PROPRANOLOL [Concomitant]
     Indication: TACHYCARDIA
     Dosage: 10 MG, QD
     Route: 048
     Dates: start: 20090217, end: 20090217
  10. ACETAMINOPHEN [Concomitant]
     Indication: HEADACHE
     Dosage: 500 MG, QD
     Route: 048
     Dates: start: 20090217, end: 20090217
  11. BENADRYL [Concomitant]
     Indication: URTICARIA
     Dosage: 50 MG, PRN
     Route: 042
     Dates: start: 20090217, end: 20090220
  12. SOLU-MEDROL [Concomitant]
     Dosage: 1000 MG, QD
     Route: 042
     Dates: start: 20091023, end: 20091027
  13. CAMPATH [Suspect]
     Indication: MULTIPLE SCLEROSIS
     Dosage: 24 MG, QDX5
     Route: 042
     Dates: start: 20090217, end: 20090221
  14. PROVIGIL [Concomitant]
     Indication: FATIGUE
     Dosage: 200 MG, BID
     Route: 048
     Dates: start: 20070101
  15. SOLU-MEDROL [Concomitant]
     Indication: MULTIPLE SCLEROSIS
     Dosage: 250 MG, QD
     Route: 042
     Dates: start: 20090220, end: 20090221
  16. BENADRYL [Concomitant]
     Dosage: 25 MG, PRN
     Route: 048
     Dates: start: 20090217, end: 20090401
  17. IMMUNE GLOBULIN NOS [Concomitant]
     Indication: MULTIPLE SCLEROSIS RELAPSE
     Dosage: UNK
     Route: 065
     Dates: start: 20090301, end: 20090401
  18. BACLOFEN [Concomitant]
     Indication: MUSCLE SPASTICITY
     Dosage: 70 MG, PRN
     Route: 048
     Dates: start: 20070901

REACTIONS (1)
  - MULTIPLE SCLEROSIS RELAPSE [None]
